FAERS Safety Report 9590470 (Version 1)
Quarter: 2013Q4

REPORT INFORMATION
  Report Type: Spontaneous
  Country: US (occurrence: US)
  Receive Date: 20131003
  Receipt Date: 20131003
  Transmission Date: 20140711
  Serious: No
  Sender: FDA-Public Use
  Company Number: US-AMGEN-USASP2012077614

PATIENT
  Age: 64 Year
  Sex: Female
  Weight: 76.64 kg

DRUGS (16)
  1. ENBREL [Suspect]
     Indication: PRODUCT USED FOR UNKNOWN INDICATION
     Dosage: 50 MG, QWK
     Route: 058
  2. AMBIEN CR [Concomitant]
     Dosage: 12.5 MG, UNK
  3. PREDNISONE [Concomitant]
     Dosage: 10 MG, UNK
  4. MELOXICAM [Concomitant]
     Dosage: 15 MG, UNK
  5. METHOTREXATE [Concomitant]
     Dosage: 2.5 MG, UNK
  6. LISINOPRIL [Concomitant]
     Dosage: 10 MG, UNK
  7. LOVAZA [Concomitant]
     Dosage: 1 G, UNK
  8. GLUCOSAMINE AND CHONDROITIN WITH MSM [Concomitant]
     Dosage: UNK
  9. VITAMIN D                          /00107901/ [Concomitant]
     Dosage: 1000 UNIT, UNK
  10. VYTORIN [Concomitant]
     Dosage: 10-40 MG
  11. CALCIUM D                          /00944201/ [Concomitant]
     Dosage: UNK
  12. FOLIC ACID [Concomitant]
     Dosage: UNK
  13. ESSENTIAL [Concomitant]
     Dosage: UNK
  14. TYLENOL P.M. [Concomitant]
     Dosage: LIQ EX ST
  15. MAGNESIUM [Concomitant]
     Dosage: 300 MG, UNK
  16. FIBER [Concomitant]
     Dosage: UNK

REACTIONS (5)
  - Fatigue [Unknown]
  - Rhinorrhoea [Unknown]
  - Malaise [Unknown]
  - Injection site bruising [Unknown]
  - Injection site pain [Unknown]
